FAERS Safety Report 6965667-2 (Version None)
Quarter: 2010Q3

REPORT INFORMATION
  Report Type: 
  Country: None (occurrence: None)
  Receive Date: 20100903
  Receipt Date: 20100903
  Transmission Date: 20110219
  Serious: Yes (Hospitalization)
  Sender: FDA-Public Use
  Company Number: IT-MILLENNIUM PHARMACEUTICALS, INC.-2009-04956

PATIENT

DRUGS (3)
  1. VELCADE [Suspect]
     Indication: MULTIPLE MYELOMA
     Dosage: 2.7 MG, UNK
     Route: 042
     Dates: start: 20091020, end: 20091022
  2. MELPHALAN [Concomitant]
     Dosage: 18 MG, UNK
     Route: 048
     Dates: start: 20091020, end: 20091022
  3. PREDNISOLONE [Concomitant]
     Dosage: 100 MG, UNK
     Route: 048
     Dates: start: 20091020, end: 20091022

REACTIONS (2)
  - ORCHITIS [None]
  - PYREXIA [None]
